FAERS Safety Report 9604740 (Version 1)
Quarter: 2013Q4

REPORT INFORMATION
  Report Type: Report from Study
  Country: US (occurrence: US)
  Receive Date: 20131008
  Receipt Date: 20131008
  Transmission Date: 20140711
  Serious: Yes (Other)
  Sender: FDA-Public Use
  Company Number: US-US-EMD SERONO, INC.-7241403

PATIENT
  Sex: Male
  Weight: 43 kg

DRUGS (3)
  1. SAIZEN [(SOMATROPIN (RDNA ORIGIN) FOR INJECTION)] [Suspect]
     Indication: GROWTH HORMONE DEFICIENCY
     Route: 058
     Dates: start: 20130114
  2. SAIZEN [(SOMATROPIN (RDNA ORIGIN) FOR INJECTION)] [Suspect]
     Indication: BODY HEIGHT BELOW NORMAL
  3. SAIZEN [(SOMATROPIN (RDNA ORIGIN) FOR INJECTION)] [Suspect]
     Indication: DWARFISM

REACTIONS (2)
  - Crohn^s disease [Recovering/Resolving]
  - Arthralgia [Unknown]
